FAERS Safety Report 16589276 (Version 1)
Quarter: 2019Q3

REPORT INFORMATION
  Report Type: Spontaneous
  Country: NL (occurrence: NL)
  Receive Date: 20190718
  Receipt Date: 20190718
  Transmission Date: 20191004
  Serious: Yes (Hospitalization)
  Sender: FDA-Public Use
  Company Number: NL-B.I. PHARMACEUTICALS,INC./RIDGEFIELD-2019-12-002215

PATIENT
  Age: 39 Year
  Sex: Female
  Weight: 85 kg

DRUGS (3)
  1. EUTHYROX N [Concomitant]
     Active Substance: LEVOTHYROXINE SODIUM
     Indication: PRODUCT USED FOR UNKNOWN INDICATION
     Route: 065
  2. SALAZOPYRINE RA [Suspect]
     Active Substance: SULFASALAZINE
     Indication: RHEUMATOID ARTHRITIS
     Dosage: 4X PER DAG 1 STUK, STOMACH RESISTANT TABLET
     Route: 065
     Dates: start: 20190426, end: 20190608
  3. MOVICOX [Suspect]
     Active Substance: MELOXICAM
     Indication: RHEUMATOID ARTHRITIS
     Dosage: 1X PER DAG 1 STUK
     Route: 065
     Dates: start: 20190426, end: 20190615

REACTIONS (2)
  - Leukopenia [Recovering/Resolving]
  - Maternal exposure during pregnancy [Unknown]

NARRATIVE: CASE EVENT DATE: 20190426
